FAERS Safety Report 5412510-9 (Version None)
Quarter: 2007Q3

REPORT INFORMATION
  Report Type: 
  Country: None (occurrence: None)
  Receive Date: 20070813
  Receipt Date: 20070808
  Transmission Date: 20080115
  Serious: Yes (Death)
  Sender: FDA-Public Use
  Company Number: A0668971A

PATIENT
  Age: 78 Year
  Sex: Male

DRUGS (2)
  1. FLONASE [Suspect]
     Route: 045
     Dates: end: 20040101
  2. UNKNOWN [Concomitant]

REACTIONS (1)
  - DEATH [None]
